FAERS Safety Report 9521560 (Version 6)
Quarter: 2014Q3

REPORT INFORMATION
  Report Type: Report from Study
  Country: GB (occurrence: GB)
  Receive Date: 20130913
  Receipt Date: 20140822
  Transmission Date: 20150326
  Serious: Yes (Hospitalization)
  Sender: FDA-Public Use
  Company Number: GB-BAYER-2013-102546

PATIENT
  Age: 47 Year
  Sex: Female

DRUGS (2)
  1. WARFARIN [Suspect]
     Active Substance: WARFARIN
     Indication: VENA CAVA THROMBOSIS
     Dosage: UNK UNK, PRN
     Route: 048
     Dates: start: 2008
  2. SORAFENIB (RAF KINASE INHIBITOR) [Suspect]
     Active Substance: SORAFENIB
     Indication: NEOPLASM
     Dosage: 800 MG BID
     Route: 048
     Dates: start: 2011

REACTIONS (3)
  - Groin abscess [Recovered/Resolved]
  - International normalised ratio increased [Recovered/Resolved]
  - Groin abscess [None]

NARRATIVE: CASE EVENT DATE: 20130701
